FAERS Safety Report 21350187 (Version 2)
Quarter: 2022Q4

REPORT INFORMATION
  Report Type: Spontaneous
  Country: US (occurrence: US)
  Receive Date: 20220919
  Receipt Date: 20221017
  Transmission Date: 20230113
  Serious: No
  Sender: FDA-Public Use
  Company Number: US-BEH-2022149536

PATIENT
  Age: 34 Year
  Sex: Female

DRUGS (1)
  1. HIZENTRA [Suspect]
     Active Substance: HUMAN IMMUNOGLOBULIN G
     Indication: Immunodeficiency common variable
     Dosage: 7 GRAM, QW
     Route: 058
     Dates: start: 20220311

REACTIONS (2)
  - Food poisoning [Unknown]
  - Infection [Unknown]

NARRATIVE: CASE EVENT DATE: 20220901
